FAERS Safety Report 5759235-8 (Version None)
Quarter: 2008Q2

REPORT INFORMATION
  Report Type: 
  Country: None (occurrence: None)
  Receive Date: 20080604
  Receipt Date: 20080523
  Transmission Date: 20081010
  Serious: Yes (Other)
  Sender: FDA-Public Use
  Company Number: US-PFIZER INC-2008045452

PATIENT
  Sex: Male
  Weight: 99.8 kg

DRUGS (7)
  1. NEURONTIN [Suspect]
     Indication: NEURALGIA
  2. NEURONTIN [Suspect]
     Indication: NERVE INJURY
  3. LYRICA [Suspect]
     Indication: NEURALGIA
  4. LYRICA [Suspect]
     Indication: NERVE INJURY
  5. SELENIUM [Concomitant]
  6. VITAMIN E [Concomitant]
  7. COLACE [Concomitant]

REACTIONS (5)
  - CONSTIPATION [None]
  - FALL [None]
  - NIGHTMARE [None]
  - SLEEP DISORDER [None]
  - TREMOR [None]
